FAERS Safety Report 7968448-6 (Version None)
Quarter: 2011Q4

REPORT INFORMATION
  Report Type: 
  Country: None (occurrence: None)
  Receive Date: 20111209
  Receipt Date: 20111206
  Transmission Date: 20120403
  Serious: No
  Sender: FDA-Public Use
  Company Number: US-PFIZER INC-2011272755

PATIENT
  Sex: Female
  Weight: 64.853 kg

DRUGS (5)
  1. YASMIN [Concomitant]
     Dosage: UNK
  2. POTASSIUM PENICILLIN G [Suspect]
     Dosage: UNK
  3. TRAZODONE [Concomitant]
     Dosage: UNK
  4. CYMBALTA [Concomitant]
     Dosage: UNK
  5. SYNTHROID [Concomitant]
     Dosage: UNK

REACTIONS (1)
  - HYPERSENSITIVITY [None]
